FAERS Safety Report 13089632 (Version 1)
Quarter: 2017Q1

REPORT INFORMATION
  Report Type: Spontaneous
  Country: US (occurrence: US)
  Receive Date: 20170105
  Receipt Date: 20170105
  Transmission Date: 20170428
  Serious: Yes (Hospitalization, Other)
  Sender: FDA-Public Use
  Company Number: US-TAKEDA-2017TUS000236

PATIENT
  Age: 50 Year
  Sex: Male

DRUGS (1)
  1. COLCHICINE. [Suspect]
     Active Substance: COLCHICINE
     Indication: PRODUCT USED FOR UNKNOWN INDICATION
     Dosage: 30 MG, Q6HR
     Route: 065

REACTIONS (2)
  - Overdose [Recovered/Resolved]
  - Toxicity to various agents [Recovered/Resolved]
